FAERS Safety Report 6370746-7 (Version None)
Quarter: 2009Q3

REPORT INFORMATION
  Report Type: 
  Country: None (occurrence: None)
  Receive Date: 20090923
  Receipt Date: 20070531
  Transmission Date: 20100115
  Serious: Yes (Other)
  Sender: FDA-Public Use
  Company Number: US-ASTRAZENECA-2006UW26156

PATIENT
  Sex: Male
  Weight: 120.2 kg

DRUGS (29)
  1. SEROQUEL [Suspect]
     Indication: HALLUCINATION, AUDITORY
     Route: 048
     Dates: start: 20021021
  2. SEROQUEL [Suspect]
     Dosage: 200 TO 300 MG
     Route: 048
     Dates: start: 20050101
  3. ABILIFY [Concomitant]
  4. GEODON [Concomitant]
  5. HALDOL [Concomitant]
     Dates: start: 20030808
  6. RISPERDAL [Concomitant]
  7. THORAZINE [Concomitant]
  8. OLANZAPINE [Concomitant]
     Dosage: 7.5 - 15 MG DAILY
     Dates: start: 20030729
  9. METHAMPHETAMINES [Concomitant]
  10. COCAINE [Concomitant]
  11. MARIJUANA [Concomitant]
  12. ATENOLOL [Concomitant]
     Dosage: 50 - 200 MG DAILY
     Dates: start: 20020430
  13. HYDROCHLOROTHIAZIDE [Concomitant]
     Dosage: 12.5 - 25 MG DAILY
     Dates: start: 20040624
  14. ENALAPRIL MALEATE [Concomitant]
     Dosage: 20 - 40 MG DAILY
     Dates: start: 20020430
  15. ISOSORBIDE [Concomitant]
     Dates: start: 20040609
  16. ACETAMINOPHEN [Concomitant]
     Dosage: 650 - 1300 MG AS NEEDED
  17. VERAPAMIL [Concomitant]
     Dosage: 120 - 240 MG DAILY
     Route: 048
  18. NAPROXEN [Concomitant]
  19. CLONIDINE [Concomitant]
  20. CLONIDINE [Concomitant]
     Dosage: 1 PATCH EVERY WEEK
  21. PROZAC [Concomitant]
     Dates: start: 20030527
  22. CHLORPROMAZINE [Concomitant]
     Dosage: 200 - 800 MG DAILY
     Dates: start: 20030729
  23. DILTIAZEM HCL ER [Concomitant]
     Dates: start: 20020430
  24. METHOCARBAMOL [Concomitant]
     Indication: BACK PAIN
     Dates: start: 20030729
  25. ATORVASTATIN [Concomitant]
     Dates: start: 20030602
  26. MOTRIN [Concomitant]
     Indication: PAIN
     Dosage: 600 MG THREE TIMES A DAY AS REQUIRED
     Dates: start: 20030530
  27. WELLBUTRIN SR [Concomitant]
     Dosage: 150 - 300 MG DAILY
     Dates: start: 20020314
  28. PAXIL [Concomitant]
     Dates: start: 20020314
  29. BENADRYL [Concomitant]
     Dates: start: 20020523

REACTIONS (3)
  - DIABETES MELLITUS [None]
  - NEUROLEPTIC MALIGNANT SYNDROME [None]
  - TARDIVE DYSKINESIA [None]
